FAERS Safety Report 4906814-3 (Version None)
Quarter: 2006Q1

REPORT INFORMATION
  Report Type: 
  Country: None (occurrence: None)
  Receive Date: 20060209
  Receipt Date: 20060130
  Transmission Date: 20060701
  Serious: Yes (Hospitalization, Other)
  Sender: FDA-Public Use
  Company Number: AU-BRISTOL-MYERS SQUIBB COMPANY-13271473

PATIENT
  Age: 31 Year
  Sex: Female

DRUGS (2)
  1. METFORMIN HCL [Suspect]
     Indication: OVULATION INDUCTION
     Route: 048
     Dates: start: 20040301
  2. CLOMIPHENE [Suspect]
     Indication: OVULATION INDUCTION
     Dosage: 5 DAY CYCLES
     Route: 048
     Dates: start: 20030801

REACTIONS (9)
  - ABORTION INDUCED [None]
  - ABORTION MISSED [None]
  - CAESAREAN SECTION [None]
  - DRUG INEFFECTIVE [None]
  - DRUG INTOLERANCE [None]
  - MULTIPLE PREGNANCY [None]
  - NORMAL NEWBORN [None]
  - PITUITARY TUMOUR BENIGN [None]
  - PREGNANCY [None]
